FAERS Safety Report 12742846 (Version 1)
Quarter: 2016Q3

REPORT INFORMATION
  Report Type: Spontaneous
  Country: US (occurrence: US)
  Receive Date: 20160914
  Receipt Date: 20160914
  Transmission Date: 20161109
  Serious: Yes (Disabling)
  Sender: FDA-Public Use
  Company Number: None

PATIENT
  Age: 57 Year
  Sex: Female
  Weight: 90 kg

DRUGS (9)
  1. DOXYCYCLINE HYCLATE 100 MG WEST [Suspect]
     Active Substance: DOXYCYCLINE HYCLATE
     Indication: EYE INFECTION
     Route: 048
     Dates: start: 20160827, end: 20160827
  2. XARELTO [Concomitant]
     Active Substance: RIVAROXABAN
  3. LISINOPRYL HCTZ [Concomitant]
  4. VITAMIN C [Concomitant]
     Active Substance: ASCORBIC ACID
  5. FLECAINIDE ACETATE. [Concomitant]
     Active Substance: FLECAINIDE ACETATE
  6. BIOTIN [Concomitant]
     Active Substance: BIOTIN
  7. TYLENOL EXTRA STRENGTH [Concomitant]
     Active Substance: ACETAMINOPHEN
  8. GLUCOSAMINE CHRONDONTIN [Concomitant]
  9. VITAMIN E [Concomitant]
     Active Substance: .ALPHA.-TOCOPHEROL

REACTIONS (2)
  - Atrial fibrillation [None]
  - Intentional product use issue [None]

NARRATIVE: CASE EVENT DATE: 20160827
